FAERS Safety Report 23677968 (Version 1)
Quarter: 2024Q1

REPORT INFORMATION
  Report Type: Spontaneous
  Country: IT (occurrence: IT)
  Receive Date: 20240327
  Receipt Date: 20240327
  Transmission Date: 20240409
  Serious: Yes (Hospitalization)
  Sender: FDA-Public Use
  Company Number: None

PATIENT
  Age: 48 Year
  Sex: Female

DRUGS (2)
  1. PAROXETINE [Suspect]
     Active Substance: PAROXETINE
     Indication: Product used for unknown indication
     Dosage: 1120 MILLIGRAM, 1 TOTAL (56 TABLETS 20 MG)
     Route: 048
     Dates: start: 20231117, end: 20231117
  2. RIVOTRIL [Concomitant]
     Active Substance: CLONAZEPAM
     Dosage: UNK
     Route: 065

REACTIONS (3)
  - Substance abuse [Unknown]
  - Palpitations [Unknown]
  - Overdose [Unknown]

NARRATIVE: CASE EVENT DATE: 20231117
